FAERS Safety Report 10227936 (Version 1)
Quarter: 2014Q2

REPORT INFORMATION
  Report Type: Spontaneous
  Country: US (occurrence: None)
  Receive Date: 20140609
  Receipt Date: 20140609
  Transmission Date: 20141212
  Serious: Yes (Disabling)
  Sender: FDA-Public Use
  Company Number: None

PATIENT
  Age: 68 Year
  Sex: Female
  Weight: 54.89 kg

DRUGS (1)
  1. NITROFURANTOIN [Suspect]
     Indication: URINARY TRACT INFECTION
     Dosage: 1 CAPSULE EVERY 12 HOURS TAKEN BY MOUTH
     Route: 048
     Dates: start: 20140531, end: 20140603

REACTIONS (6)
  - Arthralgia [None]
  - Bone pain [None]
  - Arthropathy [None]
  - Erythema [None]
  - Asthenia [None]
  - Joint irrigation [None]
